FAERS Safety Report 18923840 (Version 1)
Quarter: 2021Q1

REPORT INFORMATION
  Report Type: Spontaneous
  Country: NL (occurrence: NL)
  Receive Date: 20210222
  Receipt Date: 20210222
  Transmission Date: 20210420
  Serious: Yes (Hospitalization, Other)
  Sender: FDA-Public Use
  Company Number: NL-TAKEDA-2021TEU001436

PATIENT
  Age: 74 Year
  Sex: Male

DRUGS (2)
  1. MESALAZINE [Suspect]
     Active Substance: MESALAMINE
     Indication: COLITIS ULCERATIVE
     Dosage: UNK
     Route: 065
  2. BUDESONIDE. [Suspect]
     Active Substance: BUDESONIDE
     Indication: COLITIS ULCERATIVE
     Dosage: UNK
     Route: 065

REACTIONS (5)
  - Hypotension [Recovering/Resolving]
  - Bacteraemia [Recovering/Resolving]
  - Product use in unapproved indication [Recovering/Resolving]
  - Campylobacter infection [Recovering/Resolving]
  - Gastroenteritis astroviral [Recovering/Resolving]
